FAERS Safety Report 5020309-0 (Version None)
Quarter: 2006Q2

REPORT INFORMATION
  Report Type: 
  Country: None (occurrence: None)
  Receive Date: 20060607
  Receipt Date: 20060328
  Transmission Date: 20061013
  Serious: Yes (Hospitalization)
  Sender: FDA-Public Use
  Company Number: US-ABBOTT-06P-163-0329450-00

PATIENT
  Sex: Male

DRUGS (7)
  1. RITONAVIR SOFT GELATIN CAPSULES [Suspect]
     Indication: HIV INFECTION
     Route: 048
     Dates: start: 20060214, end: 20060315
  2. TMC114 [Concomitant]
     Indication: HIV INFECTION
     Route: 048
     Dates: start: 20060214, end: 20060315
  3. TRUVADA [Concomitant]
     Indication: HIV INFECTION
     Route: 048
     Dates: start: 20050201, end: 20060315
  4. FUZEON [Concomitant]
     Indication: HIV INFECTION
     Route: 058
     Dates: start: 20060214
  5. BACTRIM [Concomitant]
     Indication: ANTIBIOTIC PROPHYLAXIS
  6. NIFEDIPINE [Concomitant]
     Indication: HYPERTENSION
  7. ENFUVIRTIDE [Concomitant]
     Indication: HIV INFECTION
     Dosage: 1 INJECTION
     Route: 050
     Dates: start: 20060214, end: 20060315

REACTIONS (5)
  - CATHETER SITE PAIN [None]
  - HAEMOLYTIC ANAEMIA [None]
  - IMMUNE RECONSTITUTION SYNDROME [None]
  - PURULENT DISCHARGE [None]
  - THROMBOTIC THROMBOCYTOPENIC PURPURA [None]
